FAERS Safety Report 15766945 (Version 1)
Quarter: 2018Q4

REPORT INFORMATION
  Report Type: Spontaneous
  Country: IT (occurrence: IT)
  Receive Date: 20181227
  Receipt Date: 20181227
  Transmission Date: 20190205
  Serious: Yes (Hospitalization, Other)
  Sender: FDA-Public Use
  Company Number: IT-DSJP-DSE-2018-154163

PATIENT

DRUGS (2)
  1. EDOXABAN [Suspect]
     Active Substance: EDOXABAN TOSYLATE
     Dosage: 60 MG, QD
  2. EDOXABAN [Suspect]
     Active Substance: EDOXABAN TOSYLATE
     Indication: PRODUCT USED FOR UNKNOWN INDICATION
     Dosage: 60 MG, QD

REACTIONS (10)
  - Vomiting [Unknown]
  - Hepatic enzyme abnormal [Unknown]
  - Dyspnoea [Unknown]
  - Pneumonia [Unknown]
  - Pyrexia [Unknown]
  - Tenderness [Unknown]
  - Cholecystitis acute [Unknown]
  - Leukocytosis [Unknown]
  - Coagulopathy [Unknown]
  - Respiratory failure [Unknown]
